FAERS Safety Report 21275449 (Version 1)
Quarter: 2022Q3

REPORT INFORMATION
  Report Type: Spontaneous
  Country: US (occurrence: None)
  Receive Date: 20220831
  Receipt Date: 20220831
  Transmission Date: 20221026
  Serious: Yes (Other)
  Sender: FDA-Public Use
  Company Number: None

PATIENT
  Age: 65 Year
  Sex: Female
  Weight: 82.1 kg

DRUGS (2)
  1. GLIPIZIDE ER [Suspect]
     Active Substance: GLIPIZIDE
     Indication: Diabetes mellitus
     Dosage: FREQUENCY : DAILY;?
     Route: 048
     Dates: start: 20211210
  2. GLUCOTROL XL [Suspect]
     Active Substance: GLIPIZIDE

REACTIONS (2)
  - Aphthous ulcer [None]
  - Skin ulcer [None]

NARRATIVE: CASE EVENT DATE: 20211210
